FAERS Safety Report 8984063 (Version 1)
Quarter: 2012Q4

REPORT INFORMATION
  Report Type: Spontaneous
  Country: US (occurrence: None)
  Receive Date: 20121213
  Receipt Date: 20121213
  Transmission Date: 20130627
  Serious: Yes (Other)
  Sender: FDA-Public Use
  Company Number: 1079924

PATIENT
  Age: 60 Year
  Sex: Female
  Weight: 66.23 kg

DRUGS (1)
  1. LUDEN^S SUGAR-FREE WILD CHERRY [Suspect]

REACTIONS (4)
  - Flatulence [None]
  - Muscle spasms [None]
  - Diarrhoea [None]
  - Faeces discoloured [None]
